FAERS Safety Report 23272401 (Version 1)
Quarter: 2023Q4

REPORT INFORMATION
  Report Type: Spontaneous
  Country: US (occurrence: US)
  Receive Date: 20231207
  Receipt Date: 20231207
  Transmission Date: 20240110
  Serious: Yes (Hospitalization, Other)
  Sender: FDA-Public Use
  Company Number: US-SUN PHARMACEUTICAL INDUSTRIES LTD-2023R1-422291

PATIENT
  Age: 47 Year
  Sex: Male

DRUGS (5)
  1. PROPRANOLOL [Suspect]
     Active Substance: PROPRANOLOL HYDROCHLORIDE
     Indication: Atrial fibrillation
     Dosage: UNK
     Route: 065
  2. PROPYLTHIOURACIL [Suspect]
     Active Substance: PROPYLTHIOURACIL
     Indication: Atrial fibrillation
     Dosage: UNK
     Route: 065
  3. DILTIAZEM [Suspect]
     Active Substance: DILTIAZEM
     Indication: Atrial fibrillation
     Dosage: UNK
     Route: 065
  4. IODINE [Suspect]
     Active Substance: IODINE
     Indication: Atrial fibrillation
     Dosage: UNK
     Route: 065
  5. HYDROCORTISONE [Suspect]
     Active Substance: HYDROCORTISONE
     Indication: Atrial fibrillation
     Dosage: UNK
     Route: 065

REACTIONS (8)
  - Disease recurrence [Unknown]
  - Mental impairment [Unknown]
  - Cardiogenic shock [Unknown]
  - Electrocardiogram ST segment elevation [Unknown]
  - Ejection fraction decreased [Unknown]
  - Hyperthyroidism [Unknown]
  - Hepatic failure [Unknown]
  - Myopericarditis [Unknown]
